FAERS Safety Report 22738386 (Version 2)
Quarter: 2023Q4

REPORT INFORMATION
  Report Type: Spontaneous
  Country: US (occurrence: US)
  Receive Date: 20230721
  Receipt Date: 20231218
  Transmission Date: 20240109
  Serious: No
  Sender: FDA-Public Use
  Company Number: US-PFIZER INC-PV202300124913

PATIENT
  Age: 65 Year

DRUGS (2)
  1. IBRANCE [Suspect]
     Active Substance: PALBOCICLIB
     Dosage: TAKE ONE 100 MG CAPSULE DAYS 1 THROUGH 21 WITH 7 DAYS OFF
     Route: 048
  2. IBRANCE [Suspect]
     Active Substance: PALBOCICLIB
     Dosage: TAKE ONE 75 MG CAPSULE DAILY FOR 21 DAYS WITH 7 DAYS OFF
     Route: 048

REACTIONS (1)
  - Neoplasm progression [Unknown]
